FAERS Safety Report 9125506 (Version 2)
Quarter: 2013Q1

REPORT INFORMATION
  Report Type: Spontaneous
  Country: JP (occurrence: JP)
  Receive Date: 20130227
  Receipt Date: 20130326
  Transmission Date: 20140127
  Serious: Yes (Other)
  Sender: FDA-Public Use
  Company Number: JP-GLAXOSMITHKLINE-B0870527A

PATIENT
  Age: 11 Year
  Sex: Male
  Weight: 45 kg

DRUGS (5)
  1. RELENZA [Suspect]
     Indication: INFLUENZA
     Dosage: 5MG TWICE PER DAY
     Route: 055
     Dates: start: 20130201, end: 20130201
  2. THEOLONG [Concomitant]
     Indication: ASTHMA
     Dosage: 100MG TWICE PER DAY
     Route: 048
     Dates: start: 20130201, end: 20130205
  3. CHINESE MEDICINE [Concomitant]
     Indication: INFLUENZA
     Dosage: 2IUAX TWICE PER DAY
     Route: 048
     Dates: start: 20130201, end: 20130205
  4. ASVERIN (TIPEPIDINE HIBENZATE) [Concomitant]
     Indication: INFLUENZA
     Dosage: 1IUAX TWICE PER DAY
     Route: 048
     Dates: start: 20130201, end: 20130205
  5. HUSCODE [Concomitant]
     Indication: INFLUENZA
     Dosage: 2.5ML TWICE PER DAY
     Route: 048
     Dates: start: 20130201, end: 20130205

REACTIONS (6)
  - Mental impairment [Recovered/Resolved]
  - Abnormal behaviour [Recovered/Resolved]
  - Anxiety [Recovered/Resolved]
  - Phobia [Recovered/Resolved]
  - Hyperventilation [Recovered/Resolved]
  - Exaggerated startle response [Recovered/Resolved]
